FAERS Safety Report 17860801 (Version 1)
Quarter: 2020Q2

REPORT INFORMATION
  Report Type: Spontaneous
  Country: US (occurrence: US)
  Receive Date: 20200604
  Receipt Date: 20200604
  Transmission Date: 20200714
  Serious: No
  Sender: FDA-Public Use
  Company Number: US-HORIZON-TEP-0321-2020

PATIENT
  Age: 32 Year
  Sex: Female

DRUGS (1)
  1. TEPEZZA [Suspect]
     Active Substance: TEPROTUMUMAB-TRBW
     Indication: ENDOCRINE OPHTHALMOPATHY
     Route: 042
     Dates: start: 20200320

REACTIONS (4)
  - Ear infection [Recovered/Resolved]
  - Erythema [Unknown]
  - Feeling hot [Unknown]
  - Hypoacusis [Recovered/Resolved]
